FAERS Safety Report 7395694-5 (Version None)
Quarter: 2011Q2

REPORT INFORMATION
  Report Type: 
  Country: None (occurrence: None)
  Receive Date: 20110405
  Receipt Date: 20110329
  Transmission Date: 20111010
  Serious: Yes (Other)
  Sender: FDA-Public Use
  Company Number: US-BAYER-2011-028808

PATIENT
  Weight: 82 kg

DRUGS (3)
  1. ALEVE (CAPLET) [Suspect]
     Dosage: COUNT SIZE UNKNOWN
     Route: 048
  2. BAYER EXTRA STRENGTH BACK + BODY PAIN [Suspect]
     Dosage: COUNT BOTTLE UNKNOWN
     Route: 048
  3. ASPIRIN [Suspect]
     Dosage: COUNT SIZE 36
     Route: 048
     Dates: start: 20110328

REACTIONS (7)
  - ANAPHYLACTIC SHOCK [None]
  - NASAL CONGESTION [None]
  - INCREASED UPPER AIRWAY SECRETION [None]
  - DYSPNOEA [None]
  - APHAGIA [None]
  - OROPHARYNGEAL DISCOMFORT [None]
  - WHEEZING [None]
